FAERS Safety Report 9747873 (Version 2)
Quarter: 2013Q4

REPORT INFORMATION
  Report Type: Spontaneous
  Country: US (occurrence: US)
  Receive Date: 20131212
  Receipt Date: 20131212
  Transmission Date: 20140711
  Serious: Yes (Hospitalization)
  Sender: FDA-Public Use
  Company Number: US-TEVA-385496USA

PATIENT
  Age: 26 Year
  Sex: Female
  Weight: 81.27 kg

DRUGS (8)
  1. PARAGARD 380A [Suspect]
     Indication: CONTRACEPTION
     Route: 015
     Dates: start: 20130123, end: 20130207
  2. KEPRA [Concomitant]
  3. TOPAMAX [Concomitant]
  4. LAMICTAL [Concomitant]
  5. ACYCLOVIR [Concomitant]
     Indication: HERPES SIMPLEX
  6. ASPIRIN [Concomitant]
  7. FOLIC ACID [Concomitant]
  8. MULTIVITAMIN [Concomitant]

REACTIONS (2)
  - Device dislocation [Recovered/Resolved]
  - Vaginal infection [Unknown]
